FAERS Safety Report 10017993 (Version 1)
Quarter: 2014Q1

REPORT INFORMATION
  Report Type: Spontaneous
  Country: SE (occurrence: SE)
  Receive Date: 20140318
  Receipt Date: 20140318
  Transmission Date: 20141002
  Serious: Yes (Other)
  Sender: FDA-Public Use
  Company Number: SE-BRISTOL-MYERS SQUIBB COMPANY-20542171

PATIENT
  Sex: Male

DRUGS (1)
  1. LYSODREN TABS 500 MG [Suspect]

REACTIONS (2)
  - Liver function test abnormal [Not Recovered/Not Resolved]
  - Eye disorder [Not Recovered/Not Resolved]
